FAERS Safety Report 13119433 (Version 3)
Quarter: 2017Q2

REPORT INFORMATION
  Report Type: Spontaneous
  Country: US (occurrence: US)
  Receive Date: 20170116
  Receipt Date: 20170417
  Transmission Date: 20170830
  Serious: Yes (Hospitalization)
  Sender: FDA-Public Use
  Company Number: US-IMPAX LABORATORIES, INC-2016-IPXL-02529

PATIENT
  Age: 61 Year
  Sex: Male
  Weight: 113 kg

DRUGS (19)
  1. MIRTAZAPINE. [Concomitant]
     Active Substance: MIRTAZAPINE
     Indication: DEPRESSION
     Dosage: 15 MG, BEDTIME
     Route: 065
  2. KLOR-CON [Concomitant]
     Active Substance: POTASSIUM CHLORIDE
     Indication: SUPPLEMENTATION THERAPY
     Dosage: 10 MEQ, BID
     Route: 065
  3. RYTARY [Suspect]
     Active Substance: CARBIDOPA\LEVODOPA
     Indication: PARKINSON^S DISEASE
     Dosage: 48.75/195 MG, THREE CAPSULES, 3/DAY (07 AM, 03 PM AND 11 PM)
     Route: 048
     Dates: start: 2016
  4. RYTARY [Suspect]
     Active Substance: CARBIDOPA\LEVODOPA
     Dosage: 36.25/145 MG (DOSE INCREASED), UNK
     Route: 048
  5. IRBESARTAN. [Suspect]
     Active Substance: IRBESARTAN
     Indication: HYPERTENSION
     Dosage: 300 MG ONE TABLET, QD
     Route: 065
  6. COREG [Suspect]
     Active Substance: CARVEDILOL
     Indication: BLOOD PRESSURE MANAGEMENT
     Dosage: 12.5 MG, HALF TABLET, 2/DAY
     Route: 065
  7. TIKOSYN [Concomitant]
     Active Substance: DOFETILIDE
     Indication: CARDIAC DISORDER
     Dosage: 500 ?G, BID
     Route: 065
  8. SELEGILINE HCL [Concomitant]
     Active Substance: SELEGILINE HYDROCHLORIDE
     Indication: PARKINSON^S DISEASE
     Dosage: 5 MG ONE TABLET, ONCE A DAY
     Route: 065
  9. RYTARY [Suspect]
     Active Substance: CARBIDOPA\LEVODOPA
     Dosage: 48.75/195 MG, FOUR CAPSULES, FIVE TIMES A DAY
     Route: 048
  10. MELATONIN [Concomitant]
     Active Substance: MELATONIN
     Indication: SLEEP DISORDER
     Dosage: 3 MG, TWO TABLETS AT NIGHT
     Route: 065
  11. PRAMIPEXOLE. [Concomitant]
     Active Substance: PRAMIPEXOLE
     Indication: PARKINSON^S DISEASE
     Dosage: 0.5 MG TWO TABLETS, 4/DAY
     Route: 065
  12. MAGNESIUM OXIDE. [Concomitant]
     Active Substance: MAGNESIUM OXIDE
     Indication: PRODUCT USED FOR UNKNOWN INDICATION
     Dosage: 400 MG, BID
     Route: 065
  13. VITAMIN B12 [Concomitant]
     Active Substance: CYANOCOBALAMIN
     Indication: PRODUCT USED FOR UNKNOWN INDICATION
     Dosage: UNDER HIS TONGUE, QD
     Route: 065
  14. COREG [Suspect]
     Active Substance: CARVEDILOL
     Dosage: HALF TABLET, QD
     Route: 065
  15. ELIQUIS [Concomitant]
     Active Substance: APIXABAN
     Indication: ANTICOAGULANT THERAPY
     Dosage: 5 MG ONE TAB, BID
     Route: 065
  16. LASIX [Concomitant]
     Active Substance: FUROSEMIDE
     Indication: OEDEMA
     Dosage: 40 MG, BID
     Route: 065
  17. CALCIUM, MAGNESIUM, ZINC [Concomitant]
     Active Substance: CALCIUM\MAGNESIUM\ZINC
     Indication: PRODUCT USED FOR UNKNOWN INDICATION
     Dosage: UNK, BID
     Route: 065
  18. VITAMIN D [Concomitant]
     Active Substance: CHOLECALCIFEROL
     Indication: PRODUCT USED FOR UNKNOWN INDICATION
     Dosage: 2000 UNITS, ONE TABLET, A DAY
     Route: 065
  19. CLONAZEPAM. [Concomitant]
     Active Substance: CLONAZEPAM
     Indication: ANXIETY
     Dosage: 0.5 MG, ONE TABLET A DAY
     Route: 065

REACTIONS (8)
  - Heart rate decreased [Unknown]
  - Neck pain [Unknown]
  - Abasia [Unknown]
  - Blood pressure decreased [Not Recovered/Not Resolved]
  - Gait disturbance [Unknown]
  - Nausea [Recovered/Resolved]
  - Back pain [Unknown]
  - Therapeutic response shortened [Recovering/Resolving]

NARRATIVE: CASE EVENT DATE: 2016
